FAERS Safety Report 18703424 (Version 3)
Quarter: 2021Q1

REPORT INFORMATION
  Report Type: Report from Study
  Country: FR (occurrence: FR)
  Receive Date: 20210105
  Receipt Date: 20210203
  Transmission Date: 20210419
  Serious: Yes (Hospitalization)
  Sender: FDA-Public Use
  Company Number: FR-PFIZER INC-2020519444

PATIENT
  Age: 37 Year
  Sex: Female

DRUGS (5)
  1. FUROSEMIDE. [Concomitant]
     Active Substance: FUROSEMIDE
  2. FERROUS SULFATE HEPTAHYDRATE [Concomitant]
     Dosage: 80 MG, 2X/DAY
  3. APIXABAN [Concomitant]
     Active Substance: APIXABAN
     Dosage: 5 MG, 2X/DAY
  4. LANSOPRAZOLE. [Concomitant]
     Active Substance: LANSOPRAZOLE
     Dosage: 15 MG, 1X/DAY
  5. LORLATINIB [Suspect]
     Active Substance: LORLATINIB
     Indication: NON-SMALL CELL LUNG CANCER STAGE IV
     Dosage: 100 MG, 1X/DAY
     Route: 048
     Dates: start: 20201119, end: 20210104

REACTIONS (1)
  - Cardiac failure congestive [Recovered/Resolved with Sequelae]

NARRATIVE: CASE EVENT DATE: 20201229
